FAERS Safety Report 5578169-5 (Version None)
Quarter: 2007Q4

REPORT INFORMATION
  Report Type: 
  Country: None (occurrence: None)
  Receive Date: 20071231
  Receipt Date: 20071220
  Transmission Date: 20080405
  Serious: Yes (Hospitalization, Other)
  Sender: FDA-Public Use
  Company Number: BR-PFIZER INC-2007107311

PATIENT
  Sex: Female
  Weight: 87 kg

DRUGS (9)
  1. ALPRAZOLAM EXTENDED-RELEASE [Suspect]
     Indication: PSYCHOMOTOR HYPERACTIVITY
     Route: 048
  2. ALPRAZOLAM EXTENDED-RELEASE [Suspect]
     Indication: NERVOUSNESS
     Route: 048
  3. SERTRALINE [Concomitant]
  4. TRAZODONE HCL [Concomitant]
  5. HYDROCHLOROTHIAZIDE [Concomitant]
  6. CYCLOBENZAPRINE HCL [Concomitant]
  7. NIFEDIPINE [Concomitant]
  8. ENALAPRIL [Concomitant]
  9. ESTRADIOL [Concomitant]

REACTIONS (12)
  - DEPRESSION [None]
  - DISORIENTATION [None]
  - DRUG INEFFECTIVE [None]
  - FORMICATION [None]
  - HEADACHE [None]
  - INSOMNIA [None]
  - INTERVERTEBRAL DISC PROTRUSION [None]
  - MUSCULAR WEAKNESS [None]
  - NERVE INJURY [None]
  - PANIC ATTACK [None]
  - SWELLING [None]
  - TENDON INJURY [None]
